FAERS Safety Report 7750874-1 (Version None)
Quarter: 2011Q3

REPORT INFORMATION
  Report Type: 
  Country: None (occurrence: None)
  Receive Date: 20110914
  Receipt Date: 20110907
  Transmission Date: 20111222
  Serious: Yes (Death)
  Sender: FDA-Public Use
  Company Number: GR-GILEAD-E2B_00001493

PATIENT
  Age: 67 Year
  Sex: Male

DRUGS (5)
  1. AMBRISENTAN [Suspect]
     Indication: PULMONARY HYPERTENSION
     Dosage: 5MG PER DAY
     Route: 048
     Dates: start: 20110101
  2. AMBRISENTAN [Suspect]
     Indication: PULMONARY FIBROSIS
  3. CALCIUM ANTAGONIST [Suspect]
  4. DIURETIC [Concomitant]
  5. OXYGEN [Concomitant]

REACTIONS (1)
  - RESPIRATORY FAILURE [None]
